FAERS Safety Report 8597589-8 (Version None)
Quarter: 2012Q3

REPORT INFORMATION
  Report Type: 
  Country: None (occurrence: None)
  Receive Date: 20120816
  Receipt Date: 20120806
  Transmission Date: 20120928
  Serious: Yes (Hospitalization)
  Sender: FDA-Public Use
  Company Number: US-BAYER-2012-022004

PATIENT
  Age: 43 Year
  Sex: Female
  Weight: 82.54 kg

DRUGS (11)
  1. PROTOPIC [Concomitant]
     Indication: ECZEMA
     Dosage: UNK
     Route: 061
     Dates: start: 19920101
  2. DICLOFENAC POTASSIUM [Concomitant]
     Dosage: 75 MG, UNK
  3. TYLENOL [Concomitant]
     Indication: PAIN MANAGEMENT
     Dosage: 2-3 TABS 4X WEEK
     Dates: start: 20100701, end: 20100801
  4. ADVIL [Concomitant]
     Indication: PAIN MANAGEMENT
     Dosage: 2 TABS 4X WEEK
     Dates: start: 20100701, end: 20100801
  5. OMEPRAZOLE [Concomitant]
     Dosage: 20 MG
  6. PRILOSEC [Concomitant]
     Indication: LAXATIVE SUPPORTIVE CARE
     Dosage: 1 TABLET 3 X DAILY
     Dates: start: 20100701, end: 20100801
  7. XYZAL [Concomitant]
     Dosage: 5 MG, UNK
     Dates: start: 20100524
  8. DICLOFENAC [Concomitant]
     Dosage: UNK UNK, PRN
  9. YAZ [Suspect]
     Dosage: UNK
     Route: 048
     Dates: start: 20071001, end: 20081016
  10. WESTCORT [Concomitant]
     Dosage: 2 %, UNK
     Dates: start: 20100524
  11. ALEVE [Concomitant]
     Indication: PAIN MANAGEMENT
     Dosage: 2 TABS 4X WEEK
     Dates: start: 20100701, end: 20100801

REACTIONS (7)
  - ANXIETY [None]
  - EMOTIONAL DISTRESS [None]
  - GENERAL PHYSICAL HEALTH DETERIORATION [None]
  - INJURY [None]
  - CHOLELITHIASIS [None]
  - CHOLECYSTITIS ACUTE [None]
  - PAIN [None]
